FAERS Safety Report 7423426-0 (Version None)
Quarter: 2011Q2

REPORT INFORMATION
  Report Type: 
  Country: None (occurrence: None)
  Receive Date: 20110419
  Receipt Date: 20110407
  Transmission Date: 20111010
  Serious: Yes (Hospitalization, Other)
  Sender: FDA-Public Use
  Company Number: PHHY2010JP81697

PATIENT
  Sex: Male

DRUGS (9)
  1. EXJADE [Suspect]
     Dosage: 375 MG
     Route: 048
     Dates: start: 20100329
  2. EXJADE [Suspect]
     Dosage: 375 MG
     Route: 048
     Dates: start: 20100210, end: 20100312
  3. PURSENNID [Concomitant]
     Dosage: 24 MG
     Route: 048
     Dates: start: 20091110, end: 20100511
  4. ASPIRIN [Concomitant]
     Indication: ESSENTIAL THROMBOCYTHAEMIA
     Dosage: 100 MG
     Route: 048
     Dates: start: 20091110, end: 20100511
  5. MAGMITT [Concomitant]
     Dosage: 1980 MG
     Route: 048
     Dates: start: 20091110, end: 20100511
  6. HYDREA [Suspect]
     Indication: ESSENTIAL THROMBOCYTHAEMIA
     Dosage: UNK
     Route: 048
     Dates: start: 20091110
  7. RED BLOOD CELLS, CONCENTRATED [Concomitant]
     Dosage: 2 UNITS EVERY 1-2 WEEKS
  8. EXJADE [Suspect]
     Indication: IRON OVERLOAD
     Dosage: 500 MG
     Route: 048
     Dates: start: 20091110, end: 20100105
  9. EXJADE [Suspect]
     Dosage: 1000 MG
     Route: 048
     Dates: start: 20100106, end: 20100209

REACTIONS (10)
  - PNEUMONIA PNEUMOCOCCAL [None]
  - BLOOD UREA INCREASED [None]
  - SINUSITIS [None]
  - HAEMATOCRIT DECREASED [None]
  - RENAL IMPAIRMENT [None]
  - RED BLOOD CELL COUNT DECREASED [None]
  - ANAEMIA [None]
  - CONSTIPATION [None]
  - COUGH [None]
  - HAEMOGLOBIN DECREASED [None]
